APPROVED DRUG PRODUCT: HICON
Active Ingredient: SODIUM IODIDE I-131
Strength: 250-1000mCi
Dosage Form/Route: SOLUTION;ORAL
Application: N021305 | Product #007 | TE Code: AA
Applicant: JUBILANT DRAXIMAGE INC DBA JUBILANT RADIOPHARMA
Approved: Dec 5, 2011 | RLD: Yes | RS: Yes | Type: RX